FAERS Safety Report 24532561 (Version 1)
Quarter: 2024Q4

REPORT INFORMATION
  Report Type: Spontaneous
  Country: GB (occurrence: GB)
  Receive Date: 20241022
  Receipt Date: 20241022
  Transmission Date: 20250115
  Serious: Yes (Life-Threatening, Disabling, Other)
  Sender: ACCORD
  Company Number: None

PATIENT
  Age: 38 Year
  Sex: Female
  Weight: 68 kg

DRUGS (1)
  1. SERTRALINE [Suspect]
     Active Substance: SERTRALINE HYDROCHLORIDE
     Indication: Hormone level abnormal
     Dosage: 25 MG ONCE PER DAY
     Dates: start: 20240209

REACTIONS (35)
  - Palpitations [Recovered/Resolved]
  - Anxiety [Recovering/Resolving]
  - Suicide threat [Recovered/Resolved]
  - Paranoia [Recovered/Resolved]
  - Decreased appetite [Recovered/Resolved]
  - Tremor [Recovered/Resolved]
  - Hyperhidrosis [Recovered/Resolved]
  - Chest pain [Recovered/Resolved]
  - Dry eye [Recovered/Resolved]
  - Dizziness [Recovered/Resolved]
  - Fear [Recovering/Resolving]
  - Tinnitus [Recovered/Resolved]
  - Electric shock sensation [Recovered/Resolved]
  - Insomnia [Recovered/Resolved]
  - Nausea [Recovered/Resolved]
  - Diarrhoea [Recovered/Resolved]
  - Panic attack [Recovered/Resolved]
  - Impulsive behaviour [Recovered/Resolved]
  - Intrusive thoughts [Recovering/Resolving]
  - Compulsions [Recovered/Resolved]
  - Hallucination [Recovered/Resolved]
  - Loss of libido [Recovering/Resolving]
  - Memory impairment [Recovering/Resolving]
  - Disturbance in attention [Recovered/Resolved]
  - Oversensing [Recovering/Resolving]
  - Central nervous system stimulation [Recovering/Resolving]
  - Restlessness [Recovering/Resolving]
  - Phobia [Recovering/Resolving]
  - Impaired work ability [Recovered/Resolved]
  - Weight decreased [Recovered/Resolved]
  - Paraesthesia [Recovering/Resolving]
  - Back pain [Recovering/Resolving]
  - Haemorrhoids [Recovered/Resolved]
  - Irritability [Recovering/Resolving]
  - Injury [Recovering/Resolving]
